FAERS Safety Report 4366037-6 (Version None)
Quarter: 2004Q2

REPORT INFORMATION
  Report Type: 
  Country: None (occurrence: None)
  Receive Date: 20040524
  Receipt Date: 20040511
  Transmission Date: 20050107
  Serious: Yes (Other)
  Sender: FDA-Public Use
  Company Number: 206434

PATIENT

DRUGS (5)
  1. ACTILYSE(ALTEPLASE) PWDR + SOLVENT,INFUSION SOLN [Suspect]
     Indication: ACUTE MYOCARDIAL INFARCTION
     Dosage: UNK, INTRAVENOUS
     Route: 042
  2. TIROFIBAN (TIROFIBAN HYDROCHLORIDE) [Concomitant]
  3. UNFRACTIONATED HEPARIN (HEPARIN SODIUM) [Concomitant]
  4. NITRATES (NITRATES NOS) [Concomitant]
  5. ASPIRIN [Concomitant]

REACTIONS (4)
  - CEREBRAL HAEMORRHAGE [None]
  - HAEMOGLOBIN DECREASED [None]
  - RETROPERITONEAL HAEMATOMA [None]
  - THROMBOCYTOPENIA [None]
